FAERS Safety Report 25313983 (Version 1)
Quarter: 2025Q2

REPORT INFORMATION
  Report Type: Spontaneous
  Country: BE (occurrence: BE)
  Receive Date: 20250514
  Receipt Date: 20250514
  Transmission Date: 20250717
  Serious: Yes (Hospitalization, Other)
  Sender: ABBVIE
  Company Number: None

PATIENT
  Age: 55 Year
  Sex: Female
  Weight: 80 kg

DRUGS (4)
  1. ESCITALOPRAM OXALATE [Suspect]
     Active Substance: ESCITALOPRAM OXALATE
     Indication: Product used for unknown indication
     Route: 065
  2. WELLBUTRIN XL [Interacting]
     Active Substance: BUPROPION HYDROCHLORIDE
     Indication: Product used for unknown indication
     Route: 065
  3. TRAZODONE HYDROCHLORIDE [Interacting]
     Active Substance: TRAZODONE HYDROCHLORIDE
     Indication: Product used for unknown indication
     Route: 065
  4. TOPAMAX [Interacting]
     Active Substance: TOPIRAMATE
     Indication: Epilepsy
     Dosage: 25 MG IN THE MORNING, 50 MG IN THE EVENING?TOPAMAX 50 MG
     Route: 048

REACTIONS (4)
  - Calculus urinary [Recovered/Resolved]
  - Depression [Recovered/Resolved]
  - Paraesthesia [Recovered/Resolved]
  - Aphasia [Recovered/Resolved]
